FAERS Safety Report 8541252-6 (Version None)
Quarter: 2012Q3

REPORT INFORMATION
  Report Type: 
  Country: None (occurrence: None)
  Receive Date: 20120726
  Receipt Date: 20111025
  Transmission Date: 20120928
  Serious: No
  Sender: FDA-Public Use
  Company Number: US-ASTRAZENECA-2011SE57323

PATIENT
  Age: 53 Year
  Sex: Male
  Weight: 105.7 kg

DRUGS (10)
  1. SEROQUEL [Suspect]
     Route: 048
     Dates: start: 20110401
  2. SEROQUEL [Suspect]
     Dosage: 200 MG TO 400 MG AT NIGHT
     Route: 048
  3. DIAZEPAM [Concomitant]
     Indication: SLEEP DISORDER
  4. NORCO [Concomitant]
     Indication: PAIN
  5. ANALAPRIL [Concomitant]
     Indication: BLOOD PRESSURE
  6. INDERAL [Concomitant]
     Indication: BLOOD PRESSURE
  7. NITROGLYCERIN [Concomitant]
  8. ASPIRIN [Concomitant]
  9. SEROQUEL [Suspect]
     Indication: SLEEP DISORDER
     Route: 048
     Dates: start: 20110301
  10. CITPAM [Concomitant]

REACTIONS (7)
  - INSOMNIA [None]
  - DRUG PRESCRIBING ERROR [None]
  - DRUG DOSE OMISSION [None]
  - COUGH [None]
  - THINKING ABNORMAL [None]
  - OROPHARYNGEAL PAIN [None]
  - OFF LABEL USE [None]
